FAERS Safety Report 9994785 (Version 1)
Quarter: 2014Q1

REPORT INFORMATION
  Report Type: Spontaneous
  Country: US (occurrence: None)
  Receive Date: 20140307
  Receipt Date: 20140307
  Transmission Date: 20141002
  Serious: Yes (Other)
  Sender: FDA-Public Use
  Company Number: None

PATIENT
  Age: 62 Year
  Sex: Female
  Weight: 72.58 kg

DRUGS (3)
  1. TYLENOL EXTRA STRENGTH [Suspect]
     Indication: ARTHRITIS
     Route: 048
     Dates: start: 20140221
  2. TYLENOL EXTRA STRENGTH [Suspect]
     Indication: BACK PAIN
     Route: 048
     Dates: start: 20140221
  3. VITAMIN D [Suspect]

REACTIONS (4)
  - Abdominal pain [None]
  - Gastrointestinal pain [None]
  - Cough [None]
  - Asthma [None]
